FAERS Safety Report 8804696 (Version 2)
Quarter: 2012Q4

REPORT INFORMATION
  Report Type: Report from Study
  Country: US (occurrence: US)
  Receive Date: 20120924
  Receipt Date: 20121115
  Transmission Date: 20130627
  Serious: Yes (Hospitalization)
  Sender: FDA-Public Use
  Company Number: US-ABBOTT-12P-163-0980075-00

PATIENT
  Age: 53 None
  Sex: Female
  Weight: 86.26 kg

DRUGS (23)
  1. HUMIRA [Suspect]
     Indication: RHEUMATOID ARTHRITIS
     Dates: start: 200912, end: 201006
  2. METHOTREXATE [Suspect]
     Indication: PRODUCT USED FOR UNKNOWN INDICATION
     Dates: end: 201006
  3. HYDROCHLOROQUINE [Concomitant]
     Indication: RHEUMATOID ARTHRITIS
  4. LANTUS [Concomitant]
     Indication: TYPE 2 DIABETES MELLITUS
  5. APIDRA [Concomitant]
     Indication: DIABETES MELLITUS
  6. CARBIDOPA LEVODOPA [Concomitant]
     Indication: FIBROMYALGIA
  7. CARBIDOPA LEVODOPA [Concomitant]
     Indication: DYSKINESIA
  8. CLINORIL [Concomitant]
     Indication: RHEUMATOID ARTHRITIS
  9. METOPROLOL [Concomitant]
     Indication: HYPERTENSION
  10. UNNAMED MEDICATION [Concomitant]
     Indication: BLOOD CHOLESTEROL INCREASED
  11. UNNAMED THYROID MEDICATION [Concomitant]
     Indication: HYPOTHYROIDISM
  12. HYDROCHLOROTHIAZIDE [Concomitant]
     Indication: JOINT SWELLING
  13. DOXEPIN [Concomitant]
     Indication: SLEEP DISORDER THERAPY
  14. CYMBALTA [Concomitant]
     Indication: DEPRESSION
  15. CYMBALTA [Concomitant]
     Indication: PAIN
  16. CLONAZEPAM [Concomitant]
     Indication: INSOMNIA
  17. ASPIRIN [Concomitant]
     Indication: PROPHYLAXIS
  18. ASPIRIN [Concomitant]
     Indication: MYOCARDIAL INFARCTION
  19. GABAPENTIN [Concomitant]
     Indication: FIBROMYALGIA
  20. UNNAMED MUSCLE RELAXOR [Concomitant]
     Indication: MUSCLE SPASMS
  21. VITAMIN C [Concomitant]
     Indication: VITAMIN SUPPLEMENTATION
  22. MULTIVITAMIN [Concomitant]
     Indication: VITAMIN SUPPLEMENTATION
  23. VITAMIN D [Concomitant]
     Indication: VITAMIN SUPPLEMENTATION

REACTIONS (9)
  - Renal failure [Recovered/Resolved]
  - Myocardial infarction [Not Recovered/Not Resolved]
  - Pyrexia [Unknown]
  - Pyuria [Unknown]
  - Nephrolithiasis [Unknown]
  - Urinary tract obstruction [Unknown]
  - Drug ineffective [Not Recovered/Not Resolved]
  - Urosepsis [Unknown]
  - Hypertension [Unknown]
